FAERS Safety Report 4312030-9 (Version None)
Quarter: 2004Q1

REPORT INFORMATION
  Report Type: 
  Country: None (occurrence: None)
  Receive Date: 20040305
  Receipt Date: 20040219
  Transmission Date: 20041129
  Serious: Yes (Other)
  Sender: FDA-Public Use
  Company Number: PHBS2004BR02487

PATIENT
  Age: 42 Year
  Sex: Female

DRUGS (1)
  1. ZELMAC [Suspect]
     Indication: IRRITABLE BOWEL SYNDROME
     Route: 048
     Dates: start: 20040216, end: 20040201

REACTIONS (3)
  - RECTAL HAEMORRHAGE [None]
  - RECTAL TENESMUS [None]
  - REFUSAL OF TREATMENT BY PATIENT [None]
